FAERS Safety Report 20545970 (Version 1)
Quarter: 2022Q1

REPORT INFORMATION
  Report Type: Spontaneous
  Country: CA (occurrence: CA)
  Receive Date: 20220303
  Receipt Date: 20220303
  Transmission Date: 20220424
  Serious: Yes (Other)
  Sender: FDA-Public Use
  Company Number: CA-Covis Pharma GmbH-2022COV00459

PATIENT
  Sex: Male

DRUGS (1)
  1. OMNARIS [Suspect]
     Active Substance: CICLESONIDE
     Indication: Ear discomfort
     Route: 045

REACTIONS (3)
  - Loss of consciousness [Unknown]
  - Nausea [Unknown]
  - Off label use [Unknown]
